FAERS Safety Report 4500467-4 (Version None)
Quarter: 2004Q4

REPORT INFORMATION
  Report Type: 
  Country: None (occurrence: None)
  Receive Date: 20041112
  Receipt Date: 20041104
  Transmission Date: 20050328
  Serious: Yes (Hospitalization)
  Sender: FDA-Public Use
  Company Number: PHRM2004FR03283

PATIENT
  Age: 62 Year
  Sex: Female

DRUGS (2)
  1. TEGRETOL [Suspect]
     Dosage: 400 MG, QD
     Route: 048
  2. DEROXAT [Suspect]
     Dosage: 20 MG, QW3
     Route: 048
     Dates: end: 20040101

REACTIONS (9)
  - ASTHENIA [None]
  - BACK PAIN [None]
  - HYPONATRAEMIA [None]
  - LUNG INFECTION [None]
  - NAUSEA [None]
  - RESPIRATORY TRACT INFECTION [None]
  - SYSTEMIC INFLAMMATORY RESPONSE SYNDROME [None]
  - TRANSAMINASES INCREASED [None]
  - VOMITING [None]
